FAERS Safety Report 6325851-8 (Version None)
Quarter: 2009Q3

REPORT INFORMATION
  Report Type: 
  Country: None (occurrence: None)
  Receive Date: 20090824
  Receipt Date: 20090814
  Transmission Date: 20100115
  Serious: Yes (Hospitalization)
  Sender: FDA-Public Use
  Company Number: BR-ABBOTT-09P-020-0591265-00

PATIENT
  Sex: Female
  Weight: 32 kg

DRUGS (2)
  1. LUPRON DEPOT [Suspect]
     Indication: PRECOCIOUS PUBERTY
     Route: 050
     Dates: start: 20090506
  2. UNKNOWN THERAPY [Concomitant]
     Indication: PRECOCIOUS PUBERTY
     Dates: start: 20090506

REACTIONS (1)
  - PANCREATITIS [None]
